FAERS Safety Report 4681439-6 (Version None)
Quarter: 2005Q2

REPORT INFORMATION
  Report Type: 
  Country: None (occurrence: None)
  Receive Date: 20050601
  Receipt Date: 20050510
  Transmission Date: 20051028
  Serious: Yes (Death)
  Sender: FDA-Public Use
  Company Number: USA050598204

PATIENT
  Age: 82 Year
  Sex: Female

DRUGS (5)
  1. FORTEO [Suspect]
     Indication: OSTEOPOROSIS
     Dates: start: 20050101
  2. LOPRESSOR [Concomitant]
  3. OXYGEN [Concomitant]
  4. ASPIRIN [Concomitant]
  5. ALBUTEROL [Concomitant]

REACTIONS (1)
  - CARDIAC FAILURE CONGESTIVE [None]
